FAERS Safety Report 6433171-6 (Version None)
Quarter: 2009Q4

REPORT INFORMATION
  Report Type: 
  Country: None (occurrence: None)
  Receive Date: 20091109
  Receipt Date: 20091028
  Transmission Date: 20100525
  Serious: Yes (Other)
  Sender: FDA-Public Use
  Company Number: PHHY2009TR47408

PATIENT
  Sex: Female
  Weight: 68 kg

DRUGS (3)
  1. ZOLEDRONATE T29581+ [Suspect]
     Indication: METASTASES TO BONE
     Dosage: 4 MG, QMO
     Dates: start: 20090219, end: 20090713
  2. RADIOTHERAPY [Concomitant]
     Dosage: UNK
     Dates: start: 20070702, end: 20090803
  3. CISPLATIN + ETOPOSIDE [Concomitant]

REACTIONS (1)
  - OSTEOMYELITIS [None]
